FAERS Safety Report 20152534 (Version 1)
Quarter: 2021Q4

REPORT INFORMATION
  Report Type: Spontaneous
  Country: US (occurrence: US)
  Receive Date: 20211206
  Receipt Date: 20211206
  Transmission Date: 20220303
  Serious: No
  Sender: FDA-Public Use
  Company Number: US-LANNETT COMPANY, INC.-US-2020LAN000304

PATIENT
  Age: 70 Year
  Sex: Female

DRUGS (1)
  1. PILOCARPINE HYDROCHLORIDE [Suspect]
     Active Substance: PILOCARPINE HYDROCHLORIDE
     Indication: Sjogren^s syndrome
     Dosage: 5 MG, UNK
     Route: 048
     Dates: start: 20201122, end: 20201123

REACTIONS (9)
  - Chest discomfort [Not Recovered/Not Resolved]
  - Rhinorrhoea [Unknown]
  - Impaired work ability [Unknown]
  - Feeling abnormal [Unknown]
  - Palpitations [Unknown]
  - Hyperhidrosis [Unknown]
  - Headache [Not Recovered/Not Resolved]
  - Chest pain [Not Recovered/Not Resolved]
  - Product complaint [Unknown]

NARRATIVE: CASE EVENT DATE: 20201122
